FAERS Safety Report 15032495 (Version 2)
Quarter: 2020Q3

REPORT INFORMATION
  Report Type: Report from Study
  Country: None (occurrence: US)
  Receive Date: 20180619
  Receipt Date: 20200910
  Transmission Date: 20201102
  Serious: Yes (Other)
  Sender: FDA-Public Use
  Company Number: US-BAUSCH-BL-2018-017093

PATIENT
  Age: 67 Year
  Sex: Female

DRUGS (3)
  1. LIBRAX [Suspect]
     Active Substance: CHLORDIAZEPOXIDE HYDROCHLORIDE\CLIDINIUM BROMIDE
     Indication: IRRITABLE BOWEL SYNDROME
     Dosage: STRENGTH: 5 MG/2.5 MG, HAD BEEN ON LIBRAX FOR MORE THAN 40 YEARS.
     Route: 048
  2. LIBRAX [Suspect]
     Active Substance: CHLORDIAZEPOXIDE HYDROCHLORIDE\CLIDINIUM BROMIDE
     Indication: COMPLEX REGIONAL PAIN SYNDROME
  3. LIBRAX [Suspect]
     Active Substance: CHLORDIAZEPOXIDE HYDROCHLORIDE\CLIDINIUM BROMIDE
     Indication: PANCREATIC FAILURE

REACTIONS (6)
  - Fall [Unknown]
  - Hyperacusis [Unknown]
  - Joint injury [Unknown]
  - Ligament injury [Unknown]
  - Adverse event [Unknown]
  - Facial bones fracture [Unknown]
